FAERS Safety Report 24443710 (Version 2)
Quarter: 2024Q4

REPORT INFORMATION
  Report Type: Report from Study
  Country: CA (occurrence: CA)
  Receive Date: 20241016
  Receipt Date: 20241017
  Transmission Date: 20250115
  Serious: No
  Sender: ROCHE
  Company Number: CA-ROCHE-1839909

PATIENT
  Age: 53 Year
  Sex: Female
  Weight: 52.2 kg

DRUGS (21)
  1. RITUXAN [Suspect]
     Active Substance: RITUXIMAB
     Indication: Rheumatoid arthritis
     Dosage: FREQUENCY TEXT:DAY 1, DAY 15
     Route: 042
     Dates: start: 20160915, end: 20230323
  2. RITUXAN [Suspect]
     Active Substance: RITUXIMAB
     Indication: Granulomatosis with polyangiitis
     Route: 042
     Dates: start: 20220908
  3. RITUXAN [Suspect]
     Active Substance: RITUXIMAB
     Indication: Felty^s syndrome
     Route: 042
  4. RITUXAN [Suspect]
     Active Substance: RITUXIMAB
     Route: 042
  5. RITUXAN [Suspect]
     Active Substance: RITUXIMAB
     Route: 042
  6. RITUXAN [Suspect]
     Active Substance: RITUXIMAB
     Route: 042
  7. TYLENOL [Concomitant]
     Active Substance: ACETAMINOPHEN
     Indication: Premedication
     Dosage: 325-650 MG
     Route: 048
     Dates: start: 20160915
  8. BENADRYL [Concomitant]
     Active Substance: DIPHENHYDRAMINE HYDROCHLORIDE
     Indication: Premedication
     Dosage: 25-50 MG
     Route: 048
     Dates: start: 20160915
  9. SOLU-MEDROL [Concomitant]
     Active Substance: METHYLPREDNISOLONE SODIUM SUCCINATE
     Indication: Premedication
     Route: 042
     Dates: start: 20160915
  10. TEA LEAF [Concomitant]
     Active Substance: TEA LEAF
  11. DIETARY SUPPLEMENT [Concomitant]
     Active Substance: DIETARY SUPPLEMENT
  12. FLAXSEED [Concomitant]
     Active Substance: FLAX SEED
  13. FOLIC ACID [Concomitant]
     Active Substance: FOLIC ACID
  14. IMURAN [Concomitant]
     Active Substance: AZATHIOPRINE
  15. ZOPICLONE [Concomitant]
     Active Substance: ZOPICLONE
  16. PANTOPRAZOLE [Concomitant]
     Active Substance: PANTOPRAZOLE
  17. PREDNISONE [Concomitant]
     Active Substance: PREDNISONE
  18. METHOTREXATE [Concomitant]
     Active Substance: METHOTREXATE
     Dates: start: 201812
  19. CALCIUM [Concomitant]
     Active Substance: CALCIUM
  20. MAGNESIUM [Concomitant]
     Active Substance: MAGNESIUM
  21. RISEDRONATE SODIUM [Concomitant]
     Active Substance: RISEDRONATE SODIUM

REACTIONS (10)
  - Blood pressure diastolic abnormal [Unknown]
  - Off label use [Unknown]
  - Heart rate decreased [Unknown]
  - Blood pressure fluctuation [Unknown]
  - Blood pressure diastolic decreased [Unknown]
  - Blood pressure systolic increased [Unknown]
  - Dizziness [Recovered/Resolved]
  - Stress [Unknown]
  - Liver disorder [Unknown]
  - Hypertension [Recovered/Resolved]

NARRATIVE: CASE EVENT DATE: 20161006
